FAERS Safety Report 14318806 (Version 8)
Quarter: 2018Q2

REPORT INFORMATION
  Report Type: Spontaneous
  Country: CA (occurrence: CA)
  Receive Date: 20171222
  Receipt Date: 20180523
  Transmission Date: 20180711
  Serious: Yes (Other)
  Sender: FDA-Public Use
  Company Number: CA-CELLTRION INC.-2017CA016470

PATIENT

DRUGS (5)
  1. INFLECTRA [Suspect]
     Active Substance: INFLIXIMAB-DYYB
     Dosage: 300 MG, CYCLIC (EVERY 8 WEEKS)
     Route: 042
     Dates: start: 20171109
  2. INFLECTRA [Suspect]
     Active Substance: INFLIXIMAB-DYYB
     Dosage: 300 MG, CYCLIC (EVERY 8 WEEKS)
     Route: 042
     Dates: start: 20180222
  3. PREDNISONE. [Concomitant]
     Active Substance: PREDNISONE
     Dosage: 35 MG FOR 2.5 MONTHS
     Route: 065
     Dates: start: 201705
  4. MEZAVANT [Concomitant]
     Active Substance: MESALAMINE
     Dosage: 4 TABLETS ONCE DAILY
     Route: 065
  5. INFLECTRA [Suspect]
     Active Substance: INFLIXIMAB-DYYB
     Indication: COLITIS ULCERATIVE
     Dosage: 10 MG/KG, (ROUND TO 500 MG), EVERY 0,2,6 WEEKS
     Route: 042
     Dates: start: 20171109, end: 2017

REACTIONS (9)
  - Ear infection [Recovering/Resolving]
  - Drug prescribing error [Unknown]
  - Menstruation delayed [Not Recovered/Not Resolved]
  - Genital herpes [Not Recovered/Not Resolved]
  - Vaginal infection [Recovered/Resolved]
  - Drug ineffective [Unknown]
  - Weight increased [Not Recovered/Not Resolved]
  - Influenza [Unknown]
  - Clostridium difficile infection [Unknown]

NARRATIVE: CASE EVENT DATE: 201711
